FAERS Safety Report 21985415 (Version 1)
Quarter: 2023Q1

REPORT INFORMATION
  Report Type: Spontaneous
  Country: US (occurrence: None)
  Receive Date: 20230210
  Receipt Date: 20230210
  Transmission Date: 20230418
  Serious: Yes (Other)
  Sender: FDA-Public Use
  Company Number: None

PATIENT
  Age: 32 Year
  Sex: Female
  Weight: 85.28 kg

DRUGS (1)
  1. VENOFER [Suspect]
     Active Substance: IRON SUCROSE
     Route: 042
     Dates: start: 20230209, end: 20230209

REACTIONS (5)
  - Throat irritation [None]
  - Cough [None]
  - Throat irritation [None]
  - Somnolence [None]
  - Therapy non-responder [None]

NARRATIVE: CASE EVENT DATE: 20230209
